FAERS Safety Report 9830042 (Version 1)
Quarter: 2014Q1

REPORT INFORMATION
  Report Type: Spontaneous
  Country: GB (occurrence: GB)
  Receive Date: 20140120
  Receipt Date: 20140120
  Transmission Date: 20141002
  Serious: Yes (Hospitalization, Other)
  Sender: FDA-Public Use
  Company Number: GB-009507513-1401GBR005748

PATIENT
  Sex: Male

DRUGS (5)
  1. FINASTERIDE [Suspect]
     Indication: ANDROGENETIC ALOPECIA
     Dosage: 1.25 MG, QD
     Route: 048
     Dates: start: 20111230, end: 20131230
  2. FINASTERIDE [Suspect]
     Dosage: 5 MG, QW
     Route: 048
  3. DIAZEPAM [Concomitant]
     Route: 048
  4. PANTOPRAZOLE [Concomitant]
  5. TEMAZEPAM [Concomitant]

REACTIONS (2)
  - Drug dependence [Unknown]
  - Medication error [Unknown]
